FAERS Safety Report 6409960-0 (Version None)
Quarter: 2009Q4

REPORT INFORMATION
  Report Type: 
  Country: None (occurrence: None)
  Receive Date: 20091021
  Receipt Date: 20091021
  Transmission Date: 20100525
  Serious: Yes (Other)
  Sender: FDA-Public Use
  Company Number: None

PATIENT
  Age: 88 Year
  Sex: Female
  Weight: 51.7101 kg

DRUGS (2)
  1. ASPIRIN [Suspect]
     Indication: CEREBROVASCULAR ACCIDENT PROPHYLAXIS
     Dosage: 81 MG DAILY PO
     Route: 048
     Dates: start: 20090102, end: 20090919
  2. DILTIAZEM ER 180 MG APOTEX [Suspect]
     Indication: HYPERTENSION
     Dosage: 180 MG DAILY PO
     Route: 048
     Dates: start: 20090102, end: 20090920

REACTIONS (3)
  - BLOOD PRESSURE INCREASED [None]
  - POOR QUALITY DRUG ADMINISTERED [None]
  - PRODUCT QUALITY ISSUE [None]
